FAERS Safety Report 4724263-8 (Version None)
Quarter: 2005Q3

REPORT INFORMATION
  Report Type: 
  Country: None (occurrence: None)
  Receive Date: 20050722
  Receipt Date: 20050707
  Transmission Date: 20060218
  Serious: Yes (Hospitalization)
  Sender: FDA-Public Use
  Company Number: 2005103264

PATIENT
  Age: 88 Year
  Sex: Female

DRUGS (8)
  1. SPIRONOLACTONE [Suspect]
     Indication: ILL-DEFINED DISORDER
     Dosage: 25 MG , ORAL
     Route: 048
     Dates: start: 20041003, end: 20041117
  2. COVERSYL (PERINDOPRIL) [Suspect]
     Indication: CARDIAC FAILURE
     Dosage: 2 MG ( 2 MG, 1 IN 1 24 HR), ORAL
     Route: 048
     Dates: start: 20031003, end: 20041101
  3. COVERSYL (PERINDOPRIL) [Suspect]
     Indication: CARDIAC FAILURE
     Dosage: 2 MG ( 2 MG, 1 IN 1 24 HR), ORAL
     Route: 048
     Dates: start: 20041101
  4. ASPIRINE (ACETILSALICYLIC ACID) [Concomitant]
  5. ACETAMINOPHEN W/ CODEINE [Concomitant]
  6. DIGOXIN [Concomitant]
  7. THYROXIN (LEVOTHYROXINE SODIUM) [Concomitant]
  8. FUROSEMIDE (FUROSEMIDE) [Concomitant]

REACTIONS (2)
  - RENAL IMPAIRMENT [None]
  - URINARY TRACT INFECTION [None]
